FAERS Safety Report 7818273-1 (Version None)
Quarter: 2011Q4

REPORT INFORMATION
  Report Type: 
  Country: None (occurrence: None)
  Receive Date: 20111017
  Receipt Date: 20111007
  Transmission Date: 20120403
  Serious: Yes (Life-Threatening, Other)
  Sender: FDA-Public Use
  Company Number: DE-CELGENEUS-062-50794-11093006

PATIENT
  Age: 78 Year
  Sex: Male
  Weight: 75 kg

DRUGS (5)
  1. METOCLOPRAMIDE [Concomitant]
     Route: 065
  2. DEXAMETHASONE [Concomitant]
     Dosage: 8 MILLIGRAM
     Route: 048
  3. VIDAZA [Suspect]
     Dosage: 75 MILLIGRAM/SQ. METER
     Route: 041
     Dates: start: 20110701
  4. SOFRAN [Concomitant]
     Route: 065
  5. VIDAZA [Suspect]
     Dosage: 75 MILLIGRAM/SQ. METER
     Route: 058
     Dates: start: 20110704, end: 20110708

REACTIONS (3)
  - NEUTROPENIA [None]
  - INFUSION SITE ABSCESS [None]
  - SKIN NECROSIS [None]
